FAERS Safety Report 4847513-6 (Version None)
Quarter: 2005Q4

REPORT INFORMATION
  Report Type: 
  Country: None (occurrence: None)
  Receive Date: 20051205
  Receipt Date: 20051122
  Transmission Date: 20060501
  Serious: Yes (Hospitalization)
  Sender: FDA-Public Use
  Company Number: A-JP2005-11087

PATIENT
  Age: 53 Year
  Sex: Female

DRUGS (3)
  1. TRACLEER [Suspect]
     Indication: PULMONARY HYPERTENSION
     Dosage: SEE IMAGE
     Route: 048
     Dates: end: 20051101
  2. TRACLEER [Suspect]
     Indication: PULMONARY HYPERTENSION
     Dosage: SEE IMAGE
     Route: 048
     Dates: start: 20050808
  3. TRACLEER [Suspect]
     Indication: PULMONARY HYPERTENSION
     Dosage: SEE IMAGE
     Route: 048
     Dates: start: 20051101

REACTIONS (2)
  - ALANINE AMINOTRANSFERASE INCREASED [None]
  - ASPARTATE AMINOTRANSFERASE INCREASED [None]
